FAERS Safety Report 6728519-9 (Version None)
Quarter: 2010Q2

REPORT INFORMATION
  Report Type: 
  Country: None (occurrence: None)
  Receive Date: 20100517
  Receipt Date: 20100505
  Transmission Date: 20101027
  Serious: Yes (Other)
  Sender: FDA-Public Use
  Company Number: US-PFIZER INC-2010021750

PATIENT
  Sex: Female
  Weight: 66.667 kg

DRUGS (2)
  1. LYRICA [Suspect]
     Indication: NEURALGIA
     Dosage: 100 MG, UNK
     Route: 048
     Dates: start: 20091001
  2. HYDROCODONE [Concomitant]
     Dosage: 5 MG, AS NEEDED
     Route: 048

REACTIONS (13)
  - AGITATION [None]
  - ANXIETY [None]
  - DIARRHOEA [None]
  - DISTURBANCE IN ATTENTION [None]
  - FEELING ABNORMAL [None]
  - GASTROINTESTINAL DISORDER [None]
  - GLOSSODYNIA [None]
  - INSOMNIA [None]
  - LIP SWELLING [None]
  - PARAESTHESIA ORAL [None]
  - PARANOIA [None]
  - SUICIDAL IDEATION [None]
  - WITHDRAWAL SYNDROME [None]
